FAERS Safety Report 12188582 (Version 3)
Quarter: 2016Q4

REPORT INFORMATION
  Report Type: Spontaneous
  Country: NL (occurrence: NL)
  Receive Date: 20160317
  Receipt Date: 20161111
  Transmission Date: 20170207
  Serious: Yes (Other)
  Sender: FDA-Public Use
  Company Number: NL-SEPTODONT-201603278

PATIENT
  Age: 52 Year
  Sex: Female
  Weight: 73 kg

DRUGS (4)
  1. MEPIVACAINE HYDROCHLORIDE. [Suspect]
     Active Substance: MEPIVACAINE HYDROCHLORIDE
     Indication: LOCAL ANAESTHESIA
     Dosage: 1 TIME AS AN ANESTHETIC AT THE DENTIST
     Route: 004
     Dates: start: 20160218, end: 20160218
  2. KALCIPOS-D KAUWTABLET 500MG/800IE [Concomitant]
  3. LEVOCETIRIZINE TABLET FO 5 MG [Concomitant]
     Dosage: EVERY DAY
     Dates: end: 20160218
  4. ALENDRONINEZUUR SANDOZ TABLET 70MG [Concomitant]
     Dosage: 70 MG ONCE PER WEEK
     Dates: end: 20160218

REACTIONS (6)
  - Chest discomfort [Recovering/Resolving]
  - Facial paresis [Recovering/Resolving]
  - Nausea [Recovering/Resolving]
  - Heart rate increased [Recovering/Resolving]
  - Hypersensitivity [Recovering/Resolving]
  - Malaise [Recovering/Resolving]

NARRATIVE: CASE EVENT DATE: 20160218
